FAERS Safety Report 6411513-5 (Version None)
Quarter: 2009Q4

REPORT INFORMATION
  Report Type: 
  Country: None (occurrence: None)
  Receive Date: 20091023
  Receipt Date: 20091013
  Transmission Date: 20100525
  Serious: Yes (Death, Hospitalization, Other)
  Sender: FDA-Public Use
  Company Number: US-ABBOTT-09P-163-0571374-00

PATIENT
  Sex: Male

DRUGS (7)
  1. ZEMPLAR [Suspect]
     Indication: HYPERPARATHYROIDISM
     Dates: start: 20090105
  2. ALLOPURINOL [Concomitant]
     Indication: GOUT
     Dosage: NOT REPORTED
  3. ZOFRAN [Concomitant]
     Indication: NAUSEA
     Dosage: NOT REPORTED
  4. PERCOCET [Concomitant]
     Indication: PAIN
     Dosage: NOT REPORTED
  5. COUMADIN [Concomitant]
     Indication: DRUG USE FOR UNKNOWN INDICATION
     Dosage: NOT REPORTED
  6. AMBIEN [Concomitant]
     Indication: DRUG USE FOR UNKNOWN INDICATION
     Dosage: NOT REPORTED
  7. AMIODARONE [Concomitant]
     Indication: DRUG USE FOR UNKNOWN INDICATION
     Dosage: NOT REPORTED

REACTIONS (6)
  - ADVERSE EVENT [None]
  - HOSPITALISATION [None]
  - INFECTION [None]
  - LARGE INTESTINE PERFORATION [None]
  - PERITONITIS [None]
  - RENAL DISORDER [None]
